FAERS Safety Report 5595355-9 (Version None)
Quarter: 2008Q1

REPORT INFORMATION
  Report Type: 
  Country: None (occurrence: None)
  Receive Date: 20080117
  Receipt Date: 20080109
  Transmission Date: 20080703
  Serious: Yes (Death)
  Sender: FDA-Public Use
  Company Number: US-PFIZER INC-2008002951

PATIENT
  Age: 55 Year
  Sex: Male

DRUGS (7)
  1. VERAPAMIL HYDROCHLORIDE [Suspect]
  2. GABAPENTIN [Suspect]
  3. RISPERIDONE [Suspect]
  4. HYDROCODONE BITARTRATE + ACETAMINOPHEN [Suspect]
  5. MIRTAZAPINE [Suspect]
  6. ACETAMINOPHEN [Suspect]
  7. PRAVASTATIN [Suspect]

REACTIONS (1)
  - COMPLETED SUICIDE [None]
